FAERS Safety Report 9612784 (Version 2)
Quarter: 2013Q4

REPORT INFORMATION
  Report Type: Spontaneous
  Country: DE (occurrence: DE)
  Receive Date: 20131010
  Receipt Date: 20131010
  Transmission Date: 20140711
  Serious: Yes (Hospitalization, Disabling)
  Sender: FDA-Public Use
  Company Number: GXKR2013DE002466

PATIENT
  Age: 85 Year
  Sex: Female
  Weight: 80 kg

DRUGS (11)
  1. CITALOPRAM [Suspect]
     Dosage: 20 MG, QD
     Route: 048
     Dates: start: 20130713, end: 20130717
  2. VALPROAT [Suspect]
     Indication: EPILEPSY
     Dosage: 1000 MG, UNK (FOR YEARS)
  3. VALPROAT [Suspect]
     Dosage: 750 MG, BID (FOR YEARS)
     Route: 048
  4. OLMETEC [Concomitant]
     Dosage: UNK UKN, UNK
     Dates: end: 20130717
  5. BISOPROLOL [Concomitant]
  6. TORASEMID [Concomitant]
  7. AMLODIPINE [Concomitant]
     Dosage: UNK
     Dates: end: 20130701
  8. ASS [Concomitant]
  9. OMEPRAZOLE [Concomitant]
     Dosage: 20 MG, UNK
  10. L-THYROX [Concomitant]
  11. FERROSANOL [Concomitant]

REACTIONS (9)
  - Confusional state [Not Recovered/Not Resolved]
  - Affect lability [Not Recovered/Not Resolved]
  - Fatigue [Not Recovered/Not Resolved]
  - Tremor [Not Recovered/Not Resolved]
  - Heart rate irregular [Not Recovered/Not Resolved]
  - Muscular weakness [Not Recovered/Not Resolved]
  - Mental status changes [Not Recovered/Not Resolved]
  - General physical health deterioration [Not Recovered/Not Resolved]
  - Gait disturbance [Not Recovered/Not Resolved]
